FAERS Safety Report 8337174-6 (Version None)
Quarter: 2012Q2

REPORT INFORMATION
  Report Type: 
  Country: None (occurrence: None)
  Receive Date: 20120504
  Receipt Date: 20120429
  Transmission Date: 20120825
  Serious: Yes (Hospitalization)
  Sender: FDA-Public Use
  Company Number: PHHY2012MX036863

PATIENT
  Sex: Female

DRUGS (6)
  1. METFORMIN HCL [Concomitant]
     Indication: DIABETES MELLITUS
     Dosage: 1 DF
  2. LANTUS [Concomitant]
     Indication: DIABETES MELLITUS
  3. RASILEZ [Suspect]
     Indication: HYPERTENSION
     Dosage: 1 DF/DAY
     Dates: start: 20111001
  4. LOSARTAN POTASSIUM [Concomitant]
     Indication: HYPERTENSION
     Dosage: 2 DF
  5. METOPROLOL TARTRATE [Concomitant]
     Indication: HYPERTENSION
     Dosage: 2 DF
  6. NIFEDIPINE [Concomitant]
     Indication: HYPERTENSION
     Dosage: 2 DF

REACTIONS (2)
  - BLOOD PRESSURE INCREASED [None]
  - BLOOD GLUCOSE INCREASED [None]
